FAERS Safety Report 15367461 (Version 1)
Quarter: 2018Q3

REPORT INFORMATION
  Report Type: Spontaneous
  Country: US (occurrence: US)
  Receive Date: 20180910
  Receipt Date: 20180910
  Transmission Date: 20181010
  Serious: Yes (Hospitalization, Other)
  Sender: FDA-Public Use
  Company Number: US-OTSUKA-2018_019595

PATIENT

DRUGS (2)
  1. ABILIFY [Suspect]
     Active Substance: ARIPIPRAZOLE
     Indication: DEPRESSION
     Dosage: 5 MG, UNK
     Route: 065
     Dates: start: 20081028, end: 20170203
  2. ABILIFY [Suspect]
     Active Substance: ARIPIPRAZOLE
     Indication: ANXIETY
     Dosage: 30 MG, UNK
     Route: 065
     Dates: end: 20170203

REACTIONS (14)
  - Economic problem [Unknown]
  - Mental disorder [Unknown]
  - Suicide attempt [Not Recovered/Not Resolved]
  - Suicidal ideation [Not Recovered/Not Resolved]
  - Eating disorder [Not Recovered/Not Resolved]
  - Compulsive shopping [Not Recovered/Not Resolved]
  - Obsessive-compulsive disorder [Unknown]
  - Hypersexuality [Unknown]
  - Gambling disorder [Unknown]
  - Product use in unapproved indication [Unknown]
  - Weight increased [Unknown]
  - Hyperphagia [Unknown]
  - Bankruptcy [Unknown]
  - Loss of employment [Unknown]

NARRATIVE: CASE EVENT DATE: 2010
